FAERS Safety Report 6871979-3 (Version None)
Quarter: 2010Q3

REPORT INFORMATION
  Report Type: 
  Country: None (occurrence: None)
  Receive Date: 20100723
  Receipt Date: 20100713
  Transmission Date: 20110219
  Serious: Yes (Other)
  Sender: FDA-Public Use
  Company Number: US-PFIZER INC-2010088232

PATIENT
  Sex: Female
  Weight: 58.957 kg

DRUGS (2)
  1. LIPITOR [Suspect]
     Indication: BLOOD CHOLESTEROL INCREASED
     Dosage: UNK
     Route: 048
  2. CLARITIN [Concomitant]
     Indication: HYPERSENSITIVITY
     Dosage: UNK

REACTIONS (1)
  - BLOOD CALCIUM INCREASED [None]
